FAERS Safety Report 14664028 (Version 1)
Quarter: 2018Q1

REPORT INFORMATION
  Report Type: Report from Study
  Country: US (occurrence: US)
  Receive Date: 20180321
  Receipt Date: 20180321
  Transmission Date: 20180509
  Serious: Yes (Other)
  Sender: FDA-Public Use
  Company Number: US-BAYER-2018-039203

PATIENT
  Age: 57 Year
  Sex: Male

DRUGS (2)
  1. NEXAVAR [Suspect]
     Active Substance: SORAFENIB
     Indication: HEPATOCELLULAR CARCINOMA
     Dosage: DAILY DOSE 800 MG
     Route: 048
     Dates: start: 20180217
  2. NEXAVAR [Suspect]
     Active Substance: SORAFENIB
     Indication: HEPATOCELLULAR CARCINOMA
     Dosage: 200 MG, BID

REACTIONS (12)
  - Blister [None]
  - Visual impairment [None]
  - Pain in extremity [None]
  - Rash [None]
  - Exophthalmos [None]
  - Headache [None]
  - Disorientation [None]
  - Disorientation [None]
  - Diarrhoea [None]
  - Pain of skin [None]
  - Pruritus [None]
  - Headache [None]

NARRATIVE: CASE EVENT DATE: 2018
